FAERS Safety Report 8261846-5 (Version None)
Quarter: 2012Q2

REPORT INFORMATION
  Report Type: 
  Country: None (occurrence: None)
  Receive Date: 20120402
  Receipt Date: 20120328
  Transmission Date: 20120825
  Serious: Yes (Death, Life-Threatening, Hospitalization)
  Sender: FDA-Public Use
  Company Number: 2012SP008842

PATIENT
  Age: 70 Year
  Sex: Female
  Weight: 67 kg

DRUGS (12)
  1. ACETAMINOPHEN [Concomitant]
  2. BEVACIZUMAB (BEVACIZUMAB) [Suspect]
     Indication: GLIOBLASTOMA
     Dosage: 10 MG/KG
     Dates: start: 20120111, end: 20120208
  3. POTASSIUM CHLORIDE [Concomitant]
  4. NEXIUM [Concomitant]
  5. ACTRAPID [Concomitant]
  6. FUNGIZONE [Concomitant]
  7. LASIX [Concomitant]
  8. PRAVASTATIN [Concomitant]
  9. MEDROL [Suspect]
     Indication: PRODUCT USED FOR UNKNOWN INDICATION
     Dosage: 48;32 MG, QD, PO
     Route: 048
  10. LOVENOX [Concomitant]
  11. RAMIPRIL [Concomitant]
  12. TEMODAL [Suspect]
     Indication: GLIOBLASTOMA
     Dosage: PO
     Route: 048
     Dates: start: 20120111, end: 20120213

REACTIONS (14)
  - DYSPNOEA [None]
  - ABDOMINAL PAIN [None]
  - CYANOSIS [None]
  - PLATELET COUNT DECREASED [None]
  - DIVERTICULAR PERFORATION [None]
  - HYPERTHERMIA [None]
  - RASH MACULAR [None]
  - LARGE INTESTINE PERFORATION [None]
  - DECREASED APPETITE [None]
  - RENAL IMPAIRMENT [None]
  - LUNG INFECTION [None]
  - PLEURAL EFFUSION [None]
  - PNEUMOPERITONEUM [None]
  - ASTHENIA [None]
